FAERS Safety Report 19670471 (Version 3)
Quarter: 2021Q3

REPORT INFORMATION
  Report Type: Report from Study
  Country: DE (occurrence: DE)
  Receive Date: 20210806
  Receipt Date: 20210913
  Transmission Date: 20211014
  Serious: Yes (Death, Life-Threatening, Hospitalization, Other)
  Sender: FDA-Public Use
  Company Number: DE-JNJFOC-20210746685

PATIENT
  Age: 70 Year
  Sex: Female
  Weight: 89 kg

DRUGS (11)
  1. ORTHOMOL I CARE [Concomitant]
     Indication: VITAMIN SUPPLEMENTATION
     Dosage: START DATE?  //2021
     Route: 048
  2. AMIVANTAMAB. [Suspect]
     Active Substance: AMIVANTAMAB
     Indication: NON-SMALL CELL LUNG CANCER
     Dosage: MOST RECENT DOSE: 13?JUL?2021
     Route: 042
     Dates: start: 20210616
  3. PREDNISOLON [PREDNISOLONE] [Concomitant]
     Active Substance: PREDNISOLONE
     Indication: ARTHRALGIA
     Dosage: START DATE?  //2021
     Route: 048
  4. MIRTAZAPIN [Concomitant]
     Active Substance: MIRTAZAPINE
     Indication: INSOMNIA
     Route: 048
  5. LAZERTINIB. [Suspect]
     Active Substance: LAZERTINIB
     Indication: NON-SMALL CELL LUNG CANCER
     Dosage: MOST RECENT DOSE: 19?JUL?2021
     Route: 048
     Dates: start: 20210616
  6. PANTOPRAZOL [PANTOPRAZOLE] [Concomitant]
     Active Substance: PANTOPRAZOLE
     Indication: GASTROINTESTINAL DISORDER THERAPY
     Dosage: START DATE?  //2021
     Route: 048
  7. BISOPROLOL [Concomitant]
     Active Substance: BISOPROLOL
     Indication: HYPERTENSION
     Dosage: START DATE?  //2005
     Route: 048
  8. CODEINE [Concomitant]
     Active Substance: CODEINE
     Indication: COUGH
     Dosage: 15 DROPS
     Route: 048
  9. HYDROMORPHONE [Concomitant]
     Active Substance: HYDROMORPHONE
     Indication: PAIN
     Dosage: START DATE?  //2021
     Route: 048
  10. CODEINE [Concomitant]
     Active Substance: CODEINE
     Dosage: 30 DROPS; THERAPY START DATE //2021
     Route: 048
  11. MACROGOL [Concomitant]
     Active Substance: POLYETHYLENE GLYCOLS
     Indication: CONSTIPATION
     Dosage: START DATE?  //2021
     Route: 048

REACTIONS (4)
  - General physical health deterioration [Not Recovered/Not Resolved]
  - Acute respiratory failure [Fatal]
  - Pneumonitis [Not Recovered/Not Resolved]
  - Dyspnoea [Not Recovered/Not Resolved]

NARRATIVE: CASE EVENT DATE: 20210716
